FAERS Safety Report 14911740 (Version 1)
Quarter: 2018Q2

REPORT INFORMATION
  Report Type: Spontaneous
  Country: US (occurrence: US)
  Receive Date: 20180518
  Receipt Date: 20180518
  Transmission Date: 20180711
  Serious: No
  Sender: FDA-Public Use
  Company Number: US-ASTRAZENECA-2018SE62273

PATIENT
  Age: 33674 Day
  Sex: Female
  Weight: 65.8 kg

DRUGS (2)
  1. MOVANTIK [Suspect]
     Active Substance: NALOXEGOL OXALATE
     Indication: CONSTIPATION
     Route: 048
     Dates: start: 20180420
  2. MOVANTIK [Suspect]
     Active Substance: NALOXEGOL OXALATE
     Indication: CONSTIPATION
     Route: 048

REACTIONS (8)
  - Umbilical hernia [Unknown]
  - Bowel movement irregularity [Recovered/Resolved]
  - Product use in unapproved indication [Unknown]
  - Gastrooesophageal reflux disease [Unknown]
  - Off label use [Unknown]
  - Product use issue [Unknown]
  - Constipation [Unknown]
  - Inguinal hernia [Unknown]

NARRATIVE: CASE EVENT DATE: 20180506
